FAERS Safety Report 19811933 (Version 2)
Quarter: 2023Q1

REPORT INFORMATION
  Report Type: Spontaneous
  Country: CA (occurrence: CA)
  Receive Date: 20210909
  Receipt Date: 20230201
  Transmission Date: 20230418
  Serious: Yes (Other)
  Sender: FDA-Public Use
  Company Number: CA-PFIZER INC-2016326449

PATIENT
  Age: 56 Year
  Sex: Female

DRUGS (4)
  1. IBRANCE [Suspect]
     Active Substance: PALBOCICLIB
     Indication: Breast cancer metastatic
     Dosage: 125 MG, CYCLIC, X 21DAYS
     Dates: start: 20160625
  2. IBRANCE [Suspect]
     Active Substance: PALBOCICLIB
     Dosage: 100 MG, CYCLIC (1 WEEK ON/1 WEEK OFF)
  3. FULVESTRANT [Concomitant]
     Active Substance: FULVESTRANT
     Dosage: UNK
  4. LETROZOLE [Concomitant]
     Active Substance: LETROZOLE
     Indication: Breast cancer metastatic
     Dosage: 2.5 MG, DAILY
     Route: 048
     Dates: start: 20160625

REACTIONS (11)
  - Nephrolithiasis [Unknown]
  - Oedema peripheral [Not Recovered/Not Resolved]
  - Neutrophil count decreased [Unknown]
  - Vertigo [Unknown]
  - Dehydration [Unknown]
  - Fatigue [Unknown]
  - Nodule [Unknown]
  - Abdominal pain upper [Unknown]
  - Alopecia [Unknown]
  - Stress [Unknown]
  - Crying [Unknown]

NARRATIVE: CASE EVENT DATE: 20160626
